FAERS Safety Report 4569528-8 (Version None)
Quarter: 2005Q1

REPORT INFORMATION
  Report Type: 
  Country: None (occurrence: None)
  Receive Date: 20050201
  Receipt Date: 20050117
  Transmission Date: 20050727
  Serious: Yes (Other)
  Sender: FDA-Public Use
  Company Number: CIP05000134

PATIENT
  Age: 88 Year
  Sex: Female

DRUGS (7)
  1. BENET (RISEDRONATE SODIUM) TABLET, 2.5MG [Suspect]
     Indication: OSTEOPOROSIS
     Dosage: 2.5 MG DAILY, ORAL
     Route: 048
     Dates: start: 20050105, end: 20050113
  2. GASMOTIN (MOSAPRIDE CITRATE) [Concomitant]
  3. STOGAR (LAFUTIDINE) [Concomitant]
  4. APLACE (TROXIPIDE) [Concomitant]
  5. IFENPRODIL TARTRATE (IFENPRODIL TARTRATE) [Concomitant]
  6. TEPRENONE (TEPRENONE) [Concomitant]
  7. ASPIRIN [Concomitant]

REACTIONS (1)
  - HYPERKALAEMIA [None]
